FAERS Safety Report 20605412 (Version 3)
Quarter: 2022Q3

REPORT INFORMATION
  Report Type: Report from Study
  Country: CH (occurrence: CH)
  Receive Date: 20220317
  Receipt Date: 20220707
  Transmission Date: 20221027
  Serious: Yes (Hospitalization, Other)
  Sender: FDA-Public Use
  Company Number: CH-ABBVIE-22K-151-4317301-00

PATIENT
  Sex: Male

DRUGS (4)
  1. CARBIDOPA\LEVODOPA [Suspect]
     Active Substance: CARBIDOPA\LEVODOPA
     Indication: Parkinson^s disease
     Route: 050
     Dates: start: 20181204
  2. CARBIDOPA\LEVODOPA [Suspect]
     Active Substance: CARBIDOPA\LEVODOPA
     Dosage: 16H THERAPY
     Route: 050
     Dates: start: 20211030, end: 20220314
  3. CARBIDOPA\LEVODOPA [Suspect]
     Active Substance: CARBIDOPA\LEVODOPA
     Dosage: MD: 7.5 ML, CRD: 2.3 ML/H, ED: 1.0 ML. 16H THERAPY
     Route: 050
     Dates: start: 20220314, end: 2022
  4. CARBIDOPA\LEVODOPA [Suspect]
     Active Substance: CARBIDOPA\LEVODOPA
     Dosage: MD: 7.5 ML, CRD: 2.4 ML/H, ED: 0.6 ML/16H THERAPY
     Route: 050
     Dates: start: 20220531

REACTIONS (7)
  - General physical health deterioration [Not Recovered/Not Resolved]
  - Gait inability [Unknown]
  - Cerebrovascular disorder [Unknown]
  - Stoma site hypergranulation [Recovering/Resolving]
  - Stoma site erythema [Recovering/Resolving]
  - Stoma site discharge [Recovering/Resolving]
  - Device occlusion [Not Recovered/Not Resolved]
